FAERS Safety Report 11611129 (Version 1)
Quarter: 2015Q4

REPORT INFORMATION
  Report Type: Spontaneous
  Country: US (occurrence: None)
  Receive Date: 20151007
  Receipt Date: 20151007
  Transmission Date: 20160304
  Serious: No
  Sender: FDA-Public Use
  Company Number: None

PATIENT
  Age: 74 Year
  Sex: Female

DRUGS (1)
  1. CAPECITABINE. [Suspect]
     Active Substance: CAPECITABINE
     Indication: BREAST CANCER
     Dosage: TWICE DAILY FOR 14 DAYS ON, 7
     Route: 048

REACTIONS (3)
  - Pain [None]
  - Vaginal cyst [None]
  - Haemorrhagic cyst [None]

NARRATIVE: CASE EVENT DATE: 20150916
